FAERS Safety Report 23657060 (Version 1)
Quarter: 2024Q1

REPORT INFORMATION
  Report Type: Spontaneous
  Country: GB (occurrence: GB)
  Receive Date: 20240321
  Receipt Date: 20240321
  Transmission Date: 20240410
  Serious: Yes (Other)
  Sender: FDA-Public Use
  Company Number: None

PATIENT
  Age: 84 Year
  Sex: Male
  Weight: 95 kg

DRUGS (6)
  1. SOLIFENACIN SUCCINATE [Suspect]
     Active Substance: SOLIFENACIN SUCCINATE
     Indication: Bladder spasm
     Route: 048
     Dates: start: 20240110, end: 20240111
  2. RAMIPRIL [Concomitant]
     Active Substance: RAMIPRIL
     Indication: Myocardial infarction
     Route: 048
     Dates: start: 2004
  3. ATORVASTATIN [Concomitant]
     Active Substance: ATORVASTATIN
     Indication: Myocardial infarction
     Route: 048
     Dates: start: 2004
  4. FUROSEMIDE [Concomitant]
     Active Substance: FUROSEMIDE
     Indication: Myocardial infarction
     Route: 048
     Dates: start: 2004
  5. NAPROXEN [Concomitant]
     Active Substance: NAPROXEN
     Indication: Arthritis
     Route: 048
     Dates: start: 2010
  6. ASPIRIN [Concomitant]
     Active Substance: ASPIRIN
     Indication: Myocardial infarction
     Route: 048
     Dates: start: 2004

REACTIONS (2)
  - Phantom limb syndrome [Recovering/Resolving]
  - Condition aggravated [Unknown]

NARRATIVE: CASE EVENT DATE: 20240111
